FAERS Safety Report 8519351 (Version 4)
Quarter: 2013Q1

REPORT INFORMATION
  Report Type: Report from Study
  Country: FR (occurrence: FR)
  Receive Date: 20120418
  Receipt Date: 20130221
  Transmission Date: 20140127
  Serious: Yes (Hospitalization)
  Sender: FDA-Public Use
  Company Number: PHHO2012FR005899

PATIENT
  Age: 46 Year
  Sex: Female
  Weight: 67 kg

DRUGS (21)
  1. AFINITOR [Suspect]
     Indication: NEUROFIBROMATOSIS
     Dosage: 10 MG, UNK
     Route: 048
     Dates: start: 20120227, end: 20120411
  2. OXYNORM [Concomitant]
     Indication: PAIN IN EXTREMITY
     Dosage: 20 MG, DAILY
     Route: 048
     Dates: start: 2010
  3. OXYCONTIN [Concomitant]
     Indication: PAIN
     Dosage: 80 MG, DAILY
     Dates: start: 2010
  4. ANAFRANIL [Concomitant]
     Indication: DEPRESSION
     Dosage: 75 MG, UNK
     Route: 048
     Dates: start: 201001
  5. ATARAX [Concomitant]
     Indication: DEPRESSION
     Dosage: 100 MG, UNK
     Route: 048
     Dates: start: 201001
  6. PAROXETINE [Concomitant]
     Indication: DEPRESSION
     Dosage: 40 MG, UNK
     Route: 048
     Dates: start: 201001
  7. SULFARLEM [Concomitant]
     Indication: DRY MOUTH
     Dosage: 6 DF, DAILY
     Route: 048
     Dates: start: 199909
  8. ALPRAZOLAM [Concomitant]
     Indication: DEPRESSION
     Dosage: 1.5 MG, UNK
     Dates: start: 201001
  9. NEURONTIN [Concomitant]
     Indication: PAIN
     Dosage: 2400 MG, UNK
     Dates: start: 199909
  10. DOLIPRANE [Concomitant]
     Indication: HEADACHE
     Dosage: 1 G, UNK
     Route: 048
     Dates: start: 20120229, end: 20120229
  11. DOLIPRANE [Concomitant]
     Indication: DRY MOUTH
     Dosage: 1 G, UNK
     Route: 048
     Dates: start: 20120302, end: 20120302
  12. DOLIPRANE [Concomitant]
     Indication: TOOTH ABSCESS
     Dosage: 1 G, UNK
     Route: 048
     Dates: start: 20120307, end: 20120308
  13. DOLIPRANE [Concomitant]
     Dosage: 4 G, UNK
     Dates: start: 20120312, end: 20120317
  14. MAALOX [Concomitant]
     Indication: DYSPEPSIA
     Dosage: 1 DF, UNK
     Route: 048
     Dates: start: 20120301, end: 20120301
  15. MAALOX [Concomitant]
     Dosage: UNK
     Dates: start: 20120307, end: 20120307
  16. OMEPRAZOLE [Concomitant]
     Indication: DYSPEPSIA
     Dosage: UNK
     Route: 048
     Dates: start: 20120307, end: 20120307
  17. OMEPRAZOLE [Concomitant]
     Dosage: UNK
     Dates: start: 20120311, end: 20120311
  18. ELUDRIL [Concomitant]
     Indication: ULCER
     Dosage: UNK
     Dates: start: 20120308, end: 20120313
  19. SOLUPRED [Concomitant]
     Indication: ULCER
     Dosage: UNK
     Dates: start: 20120308, end: 20120313
  20. AMOXICILLIN [Concomitant]
     Indication: TOOTH ABSCESS
     Dosage: UNK
     Route: 048
     Dates: start: 20120312, end: 20120315
  21. IBUPROFEN [Concomitant]
     Indication: TOOTH ABSCESS
     Dosage: 200 MG, UNK
     Route: 048
     Dates: start: 20120314, end: 20120317

REACTIONS (1)
  - Menorrhagia [Recovered/Resolved]
